FAERS Safety Report 8510291-3 (Version None)
Quarter: 2012Q3

REPORT INFORMATION
  Report Type: 
  Country: None (occurrence: None)
  Receive Date: 20120713
  Receipt Date: 20120710
  Transmission Date: 20120928
  Serious: Yes (Hospitalization)
  Sender: FDA-Public Use
  Company Number: US-FRI-1000036955

PATIENT
  Sex: Female

DRUGS (4)
  1. VIIBRYD [Suspect]
     Dosage: 20 MG
     Route: 048
  2. LATUDA [Suspect]
  3. SEROQUEL [Suspect]
  4. ALCOHOL [Suspect]

REACTIONS (2)
  - ASPIRATION [None]
  - MULTIPLE DRUG OVERDOSE [None]
